FAERS Safety Report 22136757 (Version 1)
Quarter: 2023Q1

REPORT INFORMATION
  Report Type: Spontaneous
  Country: DE (occurrence: DE)
  Receive Date: 20230324
  Receipt Date: 20230324
  Transmission Date: 20230418
  Serious: Yes (Life-Threatening, Other)
  Sender: FDA-Public Use
  Company Number: DE-BRISTOL-MYERS SQUIBB COMPANY-BMS-2018-044838

PATIENT
  Age: 19 Year
  Sex: Male

DRUGS (5)
  1. ICLUSIG [Suspect]
     Active Substance: PONATINIB
     Indication: Synovial sarcoma
     Dosage: 30 MILLIGRAM
     Route: 048
  2. GEFITINIB [Suspect]
     Active Substance: GEFITINIB
     Indication: Synovial sarcoma
     Dosage: 250 MILLIGRAM
     Route: 048
  3. ETOPOSIDE [Suspect]
     Active Substance: ETOPOSIDE
     Indication: Synovial sarcoma
     Dosage: UNK
     Route: 048
  4. ETOPOSIDE [Suspect]
     Active Substance: ETOPOSIDE
     Dosage: 25 MILLIGRAM/SQ. METER
     Route: 048
  5. GEMCITABINE [Suspect]
     Active Substance: GEMCITABINE
     Indication: Synovial sarcoma
     Dosage: 800 MILLIGRAM/SQ. METER
     Route: 042

REACTIONS (10)
  - Neutropenia [Unknown]
  - Malignant neoplasm progression [Unknown]
  - Lymphopenia [Unknown]
  - Thrombocytopenia [Unknown]
  - Anaemia [Unknown]
  - Pericardial effusion [Unknown]
  - Cough [Unknown]
  - Pleural effusion [Unknown]
  - Product use in unapproved indication [Unknown]
  - Off label use [Unknown]
